FAERS Safety Report 20429632 (Version 1)
Quarter: 2022Q1

REPORT INFORMATION
  Report Type: Report from Study
  Country: FR (occurrence: FR)
  Receive Date: 20220204
  Receipt Date: 20220204
  Transmission Date: 20220424
  Serious: Yes (Hospitalization)
  Sender: FDA-Public Use
  Company Number: FR-SERVIER-S19007999

PATIENT

DRUGS (8)
  1. ONCASPAR [Suspect]
     Active Substance: PEGASPARGASE
     Indication: Acute lymphocytic leukaemia
     Dosage: 1525 IU/M2 ON DAY 8
     Route: 042
     Dates: start: 20190321, end: 20190321
  2. MERCAPTOPURINE [Suspect]
     Active Substance: MERCAPTOPURINE
     Indication: Acute lymphocytic leukaemia
     Dosage: 32 MG ON D1 TO D28
     Route: 048
     Dates: start: 20190314
  3. TN_UNSPECIFIED [Concomitant]
     Indication: Acute lymphocytic leukaemia
     Dosage: 0.92 MG ON D1 AND D8
     Route: 042
     Dates: start: 20190314
  4. TN UNSPECIFIED [Concomitant]
     Indication: Acute lymphocytic leukaemia
     Dosage: D1 TO D53.5 MG, QD
     Route: 048
     Dates: start: 20190314, end: 20190318
  5. TN UNSPECIFIED [Concomitant]
     Indication: Acute lymphocytic leukaemia
     Dosage: 15 MG ON D8 AND D15
     Route: 048
     Dates: start: 20190321
  6. TN UNSPECIFIED [Concomitant]
     Dosage: 12 MG ON D2
     Route: 037
     Dates: start: 20190313
  7. TN UNSPECIFIED [Concomitant]
     Dosage: 300 MG, QD
     Route: 048
  8. TN UNSPECIFIED [Concomitant]
     Indication: Acute lymphocytic leukaemia
     Dosage: 12 MG ON D2
     Route: 037
     Dates: start: 20190313

REACTIONS (2)
  - Wound decomposition [Recovered/Resolved]
  - Complication associated with device [Recovered/Resolved]

NARRATIVE: CASE EVENT DATE: 20190401
